FAERS Safety Report 16475571 (Version 2)
Quarter: 2021Q1

REPORT INFORMATION
  Report Type: Report from Study
  Country: US (occurrence: US)
  Receive Date: 20190625
  Receipt Date: 20210120
  Transmission Date: 20210419
  Serious: No
  Sender: FDA-Public Use
  Company Number: PHEH2019US026568

PATIENT
  Sex: Male

DRUGS (3)
  1. ILARIS [Suspect]
     Active Substance: CANAKINUMAB
     Indication: CRYOPYRIN ASSOCIATED PERIODIC SYNDROME
     Dosage: 150 MG, Q4W
     Route: 058
     Dates: start: 20170711
  2. ILARIS [Suspect]
     Active Substance: CANAKINUMAB
     Indication: COLD URTICARIA
     Dosage: UNK
     Route: 058
     Dates: start: 20201216
  3. ILARIS [Suspect]
     Active Substance: CANAKINUMAB
     Indication: URTICARIA THERMAL

REACTIONS (1)
  - Inappropriate schedule of product administration [Unknown]
